FAERS Safety Report 7378492-8 (Version None)
Quarter: 2011Q1

REPORT INFORMATION
  Report Type: 
  Country: None (occurrence: None)
  Receive Date: 20110328
  Receipt Date: 20101111
  Transmission Date: 20110831
  Serious: Yes (Hospitalization)
  Sender: FDA-Public Use
  Company Number: US-AMGEN-USASP2010004768

PATIENT
  Sex: Male

DRUGS (3)
  1. DANAZOL [Concomitant]
  2. NPLATE [Suspect]
     Dates: start: 20100927
  3. NPLATE [Suspect]
     Indication: IDIOPATHIC THROMBOCYTOPENIC PURPURA
     Dates: start: 20100927

REACTIONS (2)
  - ASTHENIA [None]
  - FATIGUE [None]
